FAERS Safety Report 18340279 (Version 1)
Quarter: 2020Q4

REPORT INFORMATION
  Report Type: Spontaneous
  Country: US (occurrence: US)
  Receive Date: 20201002
  Receipt Date: 20201002
  Transmission Date: 20210113
  Serious: Yes (Other)
  Sender: FDA-Public Use
  Company Number: US-PFIZER INC-2020375785

PATIENT
  Age: 5 Year
  Sex: Female
  Weight: 15 kg

DRUGS (4)
  1. MEPERIDINE HCL [Suspect]
     Active Substance: MEPERIDINE HYDROCHLORIDE
     Indication: CATHETERISATION CARDIAC
     Dosage: UNK (1.5 ML OF CARDIAC COCKTAIL)
  2. CHLORPROMAZINE. [Suspect]
     Active Substance: CHLORPROMAZINE
     Indication: CATHETERISATION CARDIAC
     Dosage: UNK (1.5 ML OF CARDIAC COCKTAIL)
  3. PROMETHAZINE [Suspect]
     Active Substance: PROMETHAZINE HYDROCHLORIDE
     Indication: CATHETERISATION CARDIAC
     Dosage: UNK (1.5 ML OF CARDIAC COCKTAIL)
  4. DIAZEPAM. [Concomitant]
     Active Substance: DIAZEPAM
     Indication: CATHETERISATION CARDIAC
     Dosage: 2.5 MG INTRAVENOUS (SLOW INFUSION)
     Route: 042

REACTIONS (2)
  - Decorticate posture [Recovered/Resolved]
  - Muscle rigidity [Recovered/Resolved]
